FAERS Safety Report 9253035 (Version 1)
Quarter: 2013Q2

REPORT INFORMATION
  Report Type: Spontaneous
  Country: US (occurrence: US)
  Receive Date: 20130424
  Receipt Date: 20130424
  Transmission Date: 20140414
  Serious: No
  Sender: FDA-Public Use
  Company Number: US-BAYER-2013-051989

PATIENT
  Age: 63 Year
  Sex: Male
  Weight: 79.37 kg

DRUGS (5)
  1. ALEVE TABLET [Suspect]
     Indication: ARTHRALGIA
     Dosage: 2 DF, QD
     Route: 048
     Dates: start: 2005
  2. ONE A DAY MEN^S 50+ HEALTHY ADVANTAGE [Concomitant]
  3. TRIAMTERENE [Concomitant]
  4. ATORVASTATIN CALCIUM [Concomitant]
  5. PAROXETINE [Concomitant]

REACTIONS (2)
  - Drug ineffective [None]
  - Incorrect drug administration duration [None]
